FAERS Safety Report 13531465 (Version 1)
Quarter: 2017Q2

REPORT INFORMATION
  Report Type: Spontaneous
  Country: IT (occurrence: IT)
  Receive Date: 20170510
  Receipt Date: 20170510
  Transmission Date: 20170830
  Serious: Yes (Death, Other)
  Sender: FDA-Public Use
  Company Number: IT-ROCHE-1932611

PATIENT
  Age: 75 Year
  Sex: Female

DRUGS (1)
  1. ACTILYSE [Suspect]
     Active Substance: ALTEPLASE
     Indication: ISCHAEMIC STROKE
     Route: 065

REACTIONS (6)
  - Myocardial rupture [Fatal]
  - Arteriosclerosis coronary artery [Unknown]
  - Pericardial effusion [Fatal]
  - Cardiac arrest [Fatal]
  - Acute coronary syndrome [Unknown]
  - Coronary artery occlusion [Unknown]
